FAERS Safety Report 16246845 (Version 1)
Quarter: 2019Q2

REPORT INFORMATION
  Report Type: Spontaneous
  Country: GB (occurrence: GB)
  Receive Date: 20190427
  Receipt Date: 20190427
  Transmission Date: 20190711
  Serious: Yes (Disabling, Other)
  Sender: FDA-Public Use
  Company Number: GB-ACCORD-124159

PATIENT
  Age: 74 Year
  Sex: Female
  Weight: 59.87 kg

DRUGS (2)
  1. TERBUTALINE [Concomitant]
     Active Substance: TERBUTALINE
     Indication: ASTHMA
  2. AMLODIPINE [Suspect]
     Active Substance: AMLODIPINE BESYLATE
     Indication: HYPERTENSION
     Route: 048
     Dates: start: 20181031

REACTIONS (8)
  - Feeling abnormal [Unknown]
  - Fatigue [Not Recovered/Not Resolved]
  - Dizziness [Not Recovered/Not Resolved]
  - Pollakiuria [Unknown]
  - Joint swelling [Unknown]
  - Rhinorrhoea [Unknown]
  - Muscle spasms [Unknown]
  - Dyspnoea exertional [Recovered/Resolved with Sequelae]

NARRATIVE: CASE EVENT DATE: 20181203
